FAERS Safety Report 18537523 (Version 1)
Quarter: 2020Q4

REPORT INFORMATION
  Report Type: Spontaneous
  Country: US (occurrence: US)
  Receive Date: 20201123
  Receipt Date: 20201123
  Transmission Date: 20210114
  Serious: No
  Sender: FDA-Public Use
  Company Number: US-PERRIGO-20US012042

PATIENT
  Age: 5 Year
  Sex: Female
  Weight: 18.14 kg

DRUGS (3)
  1. MULTIVITAMIN                       /07504101/ [Concomitant]
     Active Substance: VITAMINS
     Indication: SUPPLEMENTATION THERAPY
     Dosage: UNK, UNK
     Route: 048
     Dates: start: 2018
  2. POLYETHYLENE GLYCOL 3350. [Suspect]
     Active Substance: POLYETHYLENE GLYCOL 3350
     Indication: CONSTIPATION
     Dosage: 12 G, QD
     Route: 048
     Dates: start: 202004, end: 20200815
  3. POLYETHYLENE GLYCOL 3350. [Suspect]
     Active Substance: POLYETHYLENE GLYCOL 3350
     Dosage: 24 TO 30 G, SINGLE
     Route: 048
     Dates: start: 20200816, end: 20200816

REACTIONS (6)
  - Anal incontinence [Recovering/Resolving]
  - Frequent bowel movements [Recovering/Resolving]
  - Product administered to patient of inappropriate age [Recovered/Resolved]
  - Melaena [Not Recovered/Not Resolved]
  - Skin abrasion [Not Recovered/Not Resolved]
  - Pain [Not Recovered/Not Resolved]

NARRATIVE: CASE EVENT DATE: 202004
